FAERS Safety Report 26007302 (Version 2)
Quarter: 2025Q4

REPORT INFORMATION
  Report Type: Spontaneous
  Country: US (occurrence: US)
  Receive Date: 20251106
  Receipt Date: 20251111
  Transmission Date: 20260117
  Serious: No
  Sender: Haleon PLC
  Company Number: US-HALEON-2271495

PATIENT
  Age: 59 Year
  Sex: Female

DRUGS (1)
  1. NICOTINE POLACRILEX [Suspect]
     Active Substance: NICOTINE
     Indication: Smoking cessation therapy
     Dates: start: 20251030

REACTIONS (6)
  - Illness [Unknown]
  - Gastrointestinal disorder [Unknown]
  - Tongue discolouration [Unknown]
  - Product solubility abnormal [Unknown]
  - Product physical consistency issue [Unknown]
  - Lip discolouration [Unknown]

NARRATIVE: CASE EVENT DATE: 20251030
